FAERS Safety Report 17186535 (Version 1)
Quarter: 2019Q4

REPORT INFORMATION
  Report Type: Spontaneous
  Country: SI (occurrence: SI)
  Receive Date: 20191220
  Receipt Date: 20191220
  Transmission Date: 20200122
  Serious: Yes (Death)
  Sender: FDA-Public Use
  Company Number: SI-FRESENIUS KABI-FK201914157

PATIENT
  Age: 79 Year
  Sex: Male

DRUGS (1)
  1. DEXAMETHASONE INJECTION (MANUFACTURER UNKNOWN) [Suspect]
     Active Substance: DEXAMETHASONE
     Indication: GLIOMATOSIS CEREBRI
     Route: 065

REACTIONS (7)
  - Septic shock [Fatal]
  - Secondary immunodeficiency [Fatal]
  - Strongyloidiasis [Fatal]
  - Bronchopulmonary aspergillosis [Fatal]
  - Aspergillus infection [Fatal]
  - Respiratory moniliasis [Fatal]
  - Pneumonia [Fatal]
